FAERS Safety Report 17413115 (Version 3)
Quarter: 2020Q2

REPORT INFORMATION
  Report Type: Spontaneous
  Country: US (occurrence: US)
  Receive Date: 20200213
  Receipt Date: 20200529
  Transmission Date: 20200713
  Serious: Yes (Hospitalization, Other)
  Sender: FDA-Public Use
  Company Number: US-GILEAD-2020-0450645

PATIENT
  Age: 41 Year
  Sex: Male

DRUGS (9)
  1. SULFAMETHOXAZOLE AND TRIMETHOPRIM [Concomitant]
     Active Substance: SULFAMETHOXAZOLE\TRIMETHOPRIM
  2. LORAZEPAM. [Concomitant]
     Active Substance: LORAZEPAM
  3. CHANTIX [Concomitant]
     Active Substance: VARENICLINE TARTRATE
  4. ESCITALOPRAM [Concomitant]
     Active Substance: ESCITALOPRAM OXALATE
  5. CLOBETASOL [Concomitant]
     Active Substance: CLOBETASOL
  6. MOMETASONE FUROATE. [Concomitant]
     Active Substance: MOMETASONE FUROATE
  7. CLONAZEPAM. [Concomitant]
     Active Substance: CLONAZEPAM
  8. TRUVADA [Suspect]
     Active Substance: EMTRICITABINE\TENOFOVIR DISOPROXIL FUMARATE
     Indication: PROPHYLAXIS AGAINST HIV INFECTION
     Dosage: UNK
     Route: 048
     Dates: start: 201506, end: 20190407
  9. DOXEPIN [Concomitant]
     Active Substance: DOXEPIN

REACTIONS (8)
  - Pain [Unknown]
  - Economic problem [Unknown]
  - Anxiety [Unknown]
  - End stage renal disease [Recovered/Resolved]
  - Acute kidney injury [Recovered/Resolved]
  - Renal failure [Unknown]
  - Emotional distress [Unknown]
  - Anhedonia [Unknown]

NARRATIVE: CASE EVENT DATE: 20190407
